FAERS Safety Report 6074641-2 (Version None)
Quarter: 2009Q1

REPORT INFORMATION
  Report Type: 
  Country: None (occurrence: None)
  Receive Date: 20090209
  Receipt Date: 20090209
  Transmission Date: 20090719
  Serious: Yes (Other)
  Sender: FDA-Public Use
  Company Number: None

PATIENT
  Age: 55 Year
  Sex: Female
  Weight: 77.1115 kg

DRUGS (1)
  1. BELLADONNA AND PHENOBARBITAL [Suspect]
     Indication: MUSCLE SPASMS
     Dosage: 12 X 6HRS
     Dates: start: 20090205, end: 20090206

REACTIONS (4)
  - DIARRHOEA [None]
  - HEART RATE INCREASED [None]
  - PAIN [None]
  - VISION BLURRED [None]
